FAERS Safety Report 19789823 (Version 1)
Quarter: 2021Q3

REPORT INFORMATION
  Report Type: Spontaneous
  Country: BA (occurrence: BA)
  Receive Date: 20210904
  Receipt Date: 20210904
  Transmission Date: 20211014
  Serious: Yes (Death, Other)
  Sender: FDA-Public Use
  Company Number: BA-AMGEN-BIHSP2021133672

PATIENT
  Sex: Male

DRUGS (2)
  1. AMGEVITA [Suspect]
     Active Substance: ADALIMUMAB
     Indication: CROHN^S DISEASE
     Dosage: 40 MILLIGRAM
     Route: 058
     Dates: start: 202011, end: 202106
  2. CLEXANE [Concomitant]
     Active Substance: ENOXAPARIN SODIUM
     Indication: THROMBOSIS PROPHYLAXIS
     Dosage: 40 MILLIGRAM
     Route: 058
     Dates: start: 20210618

REACTIONS (9)
  - Haemoperitoneum [Fatal]
  - Ileal stenosis [Fatal]
  - Intra-abdominal haematoma [Fatal]
  - Abscess [Fatal]
  - Shock haemorrhagic [Fatal]
  - Haemorrhage [Fatal]
  - Splenectomy [Fatal]
  - Liver abscess [Fatal]
  - Abdominal abscess [Fatal]
